FAERS Safety Report 9633469 (Version 1)
Quarter: 2013Q4

REPORT INFORMATION
  Report Type: Spontaneous
  Country: US (occurrence: US)
  Receive Date: 20131021
  Receipt Date: 20131021
  Transmission Date: 20140711
  Serious: No
  Sender: FDA-Public Use
  Company Number: US-BAUSCH-BL-2013-003313

PATIENT
  Age: 87 Year
  Sex: Female
  Weight: 64.92 kg

DRUGS (4)
  1. BEPREVE (BEPOTASTINE BESILATE OPHTHALMIC SOLUTION 1.5%) [Suspect]
     Indication: EYE ALLERGY
     Dosage: 1 DROP IN EACH EYE; ONCE; OPHTHALMIC
     Route: 047
     Dates: start: 20130522, end: 20130522
  2. LEVOTHYROXINE [Concomitant]
     Indication: THYROID DISORDER
  3. URSODEOXYCHOLIC ACID [Concomitant]
     Indication: BILIARY CIRRHOSIS PRIMARY
  4. CLONAZEPAM [Concomitant]
     Indication: SLEEP DISORDER

REACTIONS (2)
  - Dysgeusia [Recovered/Resolved]
  - Diarrhoea [Not Recovered/Not Resolved]
